FAERS Safety Report 11776938 (Version 1)
Quarter: 2015Q4

REPORT INFORMATION
  Report Type: Spontaneous
  Country: GB (occurrence: GB)
  Receive Date: 20151125
  Receipt Date: 20151125
  Transmission Date: 20160304
  Serious: Yes (Other)
  Sender: FDA-Public Use
  Company Number: GB-TEVA-609933ACC

PATIENT
  Age: 52 Year
  Sex: Female
  Weight: 80.73 kg

DRUGS (8)
  1. TRAMADOL HYDROCHLORIDE. [Suspect]
     Active Substance: TRAMADOL HYDROCHLORIDE
     Indication: ANALGESIC THERAPY
     Route: 048
     Dates: start: 20140402
  2. CLONAZEPAM. [Concomitant]
     Active Substance: CLONAZEPAM
  3. AMITRIPTYLINE [Concomitant]
     Active Substance: AMITRIPTYLINE
  4. OMEPRAZOLE. [Concomitant]
     Active Substance: OMEPRAZOLE
  5. ZOMORPH [Concomitant]
     Active Substance: MORPHINE SULFATE
  6. BISACODYL. [Concomitant]
     Active Substance: BISACODYL
  7. DOCUSATE SODIUM. [Concomitant]
     Active Substance: DOCUSATE SODIUM
  8. VENLAFAXINE [Concomitant]
     Active Substance: VENLAFAXINE HYDROCHLORIDE

REACTIONS (3)
  - Eczema [Unknown]
  - Paraesthesia [Recovered/Resolved]
  - Pruritus [Not Recovered/Not Resolved]

NARRATIVE: CASE EVENT DATE: 20150404
